FAERS Safety Report 16737296 (Version 2)
Quarter: 2019Q3

REPORT INFORMATION
  Report Type: Spontaneous
  Country: EG (occurrence: EG)
  Receive Date: 20190823
  Receipt Date: 20190903
  Transmission Date: 20191005
  Serious: Yes (Hospitalization, Disabling, Other)
  Sender: FDA-Public Use
  Company Number: EG-NOVOPROD-680078

PATIENT
  Age: 48 Year
  Sex: Male
  Weight: 116 kg

DRUGS (1)
  1. MIXTARD HUMAN 70/30 [Suspect]
     Active Substance: INSULIN HUMAN
     Indication: DIABETES MELLITUS
     Dosage: 60 IU, QD(20 U MORNING + 40 U NIGHT)
     Route: 058
     Dates: end: 201908

REACTIONS (1)
  - Diabetic foot [Not Recovered/Not Resolved]
